FAERS Safety Report 8204979-1 (Version None)
Quarter: 2012Q1

REPORT INFORMATION
  Report Type: 
  Country: None (occurrence: None)
  Receive Date: 20120313
  Receipt Date: 20120305
  Transmission Date: 20120608
  Serious: No
  Sender: FDA-Public Use
  Company Number: US-BAYER-2012-023353

PATIENT
  Age: 4 Year
  Sex: Male
  Weight: 19 kg

DRUGS (1)
  1. ALEVE (CAPLET) [Suspect]
     Dosage: 7 DF, ONCE
     Route: 048
     Dates: start: 20120305, end: 20120305

REACTIONS (1)
  - NO ADVERSE EVENT [None]
